FAERS Safety Report 12830470 (Version 1)
Quarter: 2016Q4

REPORT INFORMATION
  Report Type: Spontaneous
  Country: US (occurrence: US)
  Receive Date: 20161007
  Receipt Date: 20161007
  Transmission Date: 20170207
  Serious: No
  Sender: FDA-Public Use
  Company Number: US-SA-2016SA145160

PATIENT
  Age: 79 Year
  Sex: Female
  Weight: 72.57 kg

DRUGS (7)
  1. FLUTICASONE [Concomitant]
     Active Substance: FLUTICASONE\FLUTICASONE PROPIONATE
  2. SIMVASTATIN. [Concomitant]
     Active Substance: SIMVASTATIN
  3. CALCITRIOL. [Concomitant]
     Active Substance: CALCITRIOL
  4. AUBAGIO [Suspect]
     Active Substance: TERIFLUNOMIDE
     Indication: MULTIPLE SCLEROSIS
     Route: 048
     Dates: start: 201602
  5. HYDROCODONE [Concomitant]
     Active Substance: HYDROCODONE
  6. FIBER [Concomitant]
     Active Substance: PSYLLIUM HUSK
  7. METOPROLOL. [Concomitant]
     Active Substance: METOPROLOL

REACTIONS (1)
  - Blood urine [Recovered/Resolved]

NARRATIVE: CASE EVENT DATE: 20160730
